FAERS Safety Report 24293404 (Version 1)
Quarter: 2024Q3

REPORT INFORMATION
  Report Type: Spontaneous
  Country: US (occurrence: None)
  Receive Date: 20240906
  Receipt Date: 20240906
  Transmission Date: 20241016
  Serious: No
  Sender: DOMPE FARMACEUTICI
  Company Number: US-FARMAPROD-202401-0085

PATIENT
  Age: 61 Year
  Sex: Female

DRUGS (20)
  1. OXERVATE [Suspect]
     Active Substance: CENEGERMIN-BKBJ
     Indication: Neurotrophic keratopathy
     Route: 047
     Dates: start: 20231212
  2. ARTIFICIAL TEARS [Concomitant]
  3. LATANOPROST [Concomitant]
     Active Substance: LATANOPROST
  4. DEXAMETHASONE\NEOMYCIN\POLYMYXIN B SULFATE [Concomitant]
     Active Substance: DEXAMETHASONE\NEOMYCIN\POLYMYXIN B SULFATE
  5. AZELASTINE HYDROCHLORIDE\FLUTICASONE PROPIONATE [Concomitant]
     Active Substance: AZELASTINE HYDROCHLORIDE\FLUTICASONE PROPIONATE
  6. LEVOTHYROXINE SODIUM [Concomitant]
     Active Substance: LEVOTHYROXINE SODIUM
  7. ZADITOR [Concomitant]
     Active Substance: KETOTIFEN FUMARATE
  8. POTASSIUM CHLORIDE [Concomitant]
     Active Substance: POTASSIUM CHLORIDE
     Dosage: SUSTAINED ADMINISTRATION
  9. ALLEGRA ALLERGY [Concomitant]
     Active Substance: FEXOFENADINE HYDROCHLORIDE
  10. ALPHAGAN P [Concomitant]
     Active Substance: BRIMONIDINE TARTRATE
  11. TOBRAMYCIN [Concomitant]
     Active Substance: TOBRAMYCIN\TOBRAMYCIN SULFATE
  12. ACETAZOLAMIDE [Concomitant]
     Active Substance: ACETAZOLAMIDE
  13. KETOROLAC TROMETHAMINE [Concomitant]
     Active Substance: KETOROLAC TROMETHAMINE
  14. FAMOTIDINE [Concomitant]
     Active Substance: FAMOTIDINE
  15. LEVOTHYROXINE SODIUM [Concomitant]
     Active Substance: LEVOTHYROXINE SODIUM
  16. HYDROCHLOROTHIAZIDE [Concomitant]
     Active Substance: HYDROCHLOROTHIAZIDE
  17. LISINOPRIL [Concomitant]
     Active Substance: LISINOPRIL
  18. CYCLOBENZAPRINE HYDROCHLORIDE [Concomitant]
     Active Substance: CYCLOBENZAPRINE HYDROCHLORIDE
  19. MOXIFLOXACIN [Concomitant]
     Active Substance: MOXIFLOXACIN
  20. LOTEPREDNOL [Concomitant]
     Active Substance: LOTEPREDNOL

REACTIONS (4)
  - COVID-19 [Unknown]
  - Cough [Unknown]
  - Product dose omission issue [Unknown]
  - Intentional product misuse [Unknown]

NARRATIVE: CASE EVENT DATE: 20231201
